FAERS Safety Report 8371441-5 (Version None)
Quarter: 2012Q2

REPORT INFORMATION
  Report Type: 
  Country: None (occurrence: None)
  Receive Date: 20120518
  Receipt Date: 20120507
  Transmission Date: 20120825
  Serious: No
  Sender: FDA-Public Use
  Company Number: US-ASTRAZENECA-2012SE27321

PATIENT
  Age: 46 Year
  Sex: Male

DRUGS (6)
  1. PRILOSEC [Suspect]
     Route: 048
  2. PRILOSEC [Suspect]
     Dosage: OMEPRAZOLE
     Route: 048
  3. ZANTAC [Concomitant]
  4. NEXIUM [Suspect]
     Route: 048
  5. PREVACID [Concomitant]
  6. SYNTHROID [Concomitant]

REACTIONS (8)
  - CHOKING [None]
  - DYSPEPSIA [None]
  - ABDOMINAL DISTENSION [None]
  - DRUG INEFFECTIVE [None]
  - GASTROOESOPHAGEAL REFLUX DISEASE [None]
  - INTENTIONAL DRUG MISUSE [None]
  - NAUSEA [None]
  - VOMITING [None]
